FAERS Safety Report 8209144-X (Version None)
Quarter: 2012Q1

REPORT INFORMATION
  Report Type: 
  Country: None (occurrence: None)
  Receive Date: 20120314
  Receipt Date: 20120307
  Transmission Date: 20120608
  Serious: Yes (Hospitalization, Other)
  Sender: FDA-Public Use
  Company Number: JP-BAYER-2012-018024

PATIENT
  Age: 78 Year
  Sex: Male
  Weight: 51 kg

DRUGS (10)
  1. NEXAVAR [Suspect]
     Indication: HEPATIC NEOPLASM MALIGNANT
     Dosage: 200 MG, BID
     Route: 048
     Dates: start: 20120121, end: 20120203
  2. AMARYL [Concomitant]
     Indication: DIABETES MELLITUS
     Dosage: DAILY DOSE 2 MG
     Route: 048
     Dates: start: 20060921, end: 20120216
  3. LASIX [Concomitant]
     Indication: CARDIAC FAILURE
     Dosage: DAILY DOSE 20 MG
     Route: 048
  4. URSO 250 [Concomitant]
     Indication: HEPATITIS C
     Dosage: DAILY DOSE 600 MG
     Route: 048
  5. LANSOPRAZOLE [Concomitant]
     Indication: GASTROOESOPHAGEAL REFLUX DISEASE
     Dosage: DAILY DOSE 15 MG
     Route: 048
     Dates: start: 20010225
  6. WARFARIN SODIUM [Concomitant]
     Indication: THROMBOSIS PROPHYLAXIS
     Dosage: DAILY DOSE 2 MG
     Route: 048
     Dates: end: 20120209
  7. NEXAVAR [Suspect]
     Dosage: 400 MG, QD
     Dates: start: 20120204, end: 20120207
  8. ALDACTONE [Concomitant]
     Indication: CARDIAC FAILURE
     Dosage: DAILY DOSE 25 MG
     Route: 048
     Dates: start: 20051007
  9. SOTALOL HYDROCHLORIDE [Concomitant]
     Indication: ARRHYTHMIA
     Dosage: DAILY DOSE 160 MG
     Route: 048
     Dates: start: 20010309
  10. LEVOTHYROXINE SODIUM [Concomitant]
     Indication: PRIMARY HYPOTHYROIDISM
     Dosage: DAILY DOSE 200 ?G
     Route: 048
     Dates: start: 20010325

REACTIONS (3)
  - PERFORMANCE STATUS DECREASED [None]
  - INTERSTITIAL LUNG DISEASE [None]
  - CARDIAC FAILURE CHRONIC [None]
